FAERS Safety Report 7369003-1 (Version None)
Quarter: 2011Q1

REPORT INFORMATION
  Report Type: 
  Country: None (occurrence: None)
  Receive Date: 20110323
  Receipt Date: 20090529
  Transmission Date: 20110831
  Serious: Yes (Death, Other)
  Sender: FDA-Public Use
  Company Number: US-BAYER-200921621NA

PATIENT
  Sex: Female
  Weight: 72.562 kg

DRUGS (21)
  1. NITROGLYCERIN [Concomitant]
     Dosage: UNK
     Route: 042
     Dates: start: 19990804
  2. HUMULIN N [INSULIN HUMAN] [Concomitant]
     Dosage: 22 IU IN AM
     Route: 058
     Dates: start: 19890101
  3. VERSED [Concomitant]
     Dosage: UNK
     Route: 042
     Dates: start: 19990804
  4. ASPIRIN [Concomitant]
     Dosage: 1 DAILY
     Route: 048
     Dates: start: 19960101
  5. LANOXIN [Concomitant]
     Dosage: 0.125 MG, QD
     Route: 048
  6. ALPRAZOLAM [Concomitant]
     Dosage: 0.5 MG, QD
     Route: 048
     Dates: start: 19980101
  7. PLATELETS [Concomitant]
     Dosage: 1 U, UNK
     Dates: start: 19990804
  8. HUMULIN N [INSULIN HUMAN] [Concomitant]
     Dosage: 10 IU AT NIGHT
     Route: 058
     Dates: start: 19890101
  9. CEFAZOLIN [Concomitant]
     Dosage: 1 G, UNK
     Route: 042
     Dates: start: 19990804
  10. PROTAMINE SULFATE [Concomitant]
     Dosage: UNK
     Route: 042
     Dates: start: 19990804
  11. ZOLOFT [Concomitant]
     Dosage: 2 MG - 1-1/2 TABS DAILY
     Route: 048
     Dates: start: 19990701
  12. DOPAMINE [Concomitant]
     Dosage: UNK
     Route: 042
     Dates: start: 19990804
  13. CALCIUM CHLORIDE [Concomitant]
     Dosage: 13 MEQ/10ML
     Route: 042
     Dates: start: 19990804
  14. TRASYLOL [Suspect]
     Indication: CORONARY ARTERY BYPASS
     Dosage: 2 ML TEST, 100 CC LOADING DOSE, 25 CC/HR DRIP
     Route: 042
     Dates: start: 19990804, end: 19990804
  15. SUFENTANIL CITRATE [Concomitant]
     Dosage: UNK
     Route: 042
     Dates: start: 19990804
  16. PROCARDIA XL [Concomitant]
     Dosage: 60 MG, QD
     Route: 048
  17. NITROGLYCERIN [Concomitant]
     Indication: CHEST PAIN
     Dosage: UNK UNK, PRN
     Route: 060
     Dates: start: 19960101
  18. GEMFIBROZIL [Concomitant]
     Dosage: 6 MG, BID
     Route: 048
     Dates: start: 19940101
  19. PLASMA-LYTE 56 AND DEXTROSE 5% IN PLASTIC CONTAINER [Concomitant]
     Dosage: X2
     Dates: start: 19990804
  20. LEVOPHED [Concomitant]
     Dosage: UNK
     Route: 042
     Dates: start: 19990804
  21. ALBUMIN (HUMAN) [Concomitant]
     Dosage: 25GM/100ML
     Dates: start: 19990804

REACTIONS (6)
  - RENAL INJURY [None]
  - UNEVALUABLE EVENT [None]
  - INJURY [None]
  - RENAL FAILURE [None]
  - RENAL FAILURE ACUTE [None]
  - PAIN [None]
